FAERS Safety Report 14876602 (Version 17)
Quarter: 2024Q3

REPORT INFORMATION
  Report Type: Report from Study
  Country: IT (occurrence: IT)
  Receive Date: 20180510
  Receipt Date: 20240909
  Transmission Date: 20241017
  Serious: Yes (Hospitalization, Other)
  Sender: PFIZER
  Company Number: IT-BRISTOL-MYERS SQUIBB COMPANY-BMS-2018-038445

PATIENT
  Age: 58 Year
  Sex: Male

DRUGS (13)
  1. ELIQUIS [Suspect]
     Active Substance: APIXABAN
     Dosage: 60 DF, TOTAL
     Route: 048
     Dates: start: 20180118, end: 20180118
  2. ATORVASTATIN CALCIUM [Suspect]
     Active Substance: ATORVASTATIN CALCIUM
     Dosage: 50 DOSAGE FORM, TOTAL
     Route: 048
     Dates: start: 20180118, end: 20180118
  3. TRIAZOLAM [Suspect]
     Active Substance: TRIAZOLAM
     Dosage: 20 DOSAGE FORM, TOTAL
     Route: 048
     Dates: start: 20180118, end: 20180118
  4. AMLODIPINE BESYLATE [Suspect]
     Active Substance: AMLODIPINE BESYLATE
     Dosage: 14 DOSAGE FORM, TOTAL
     Route: 048
     Dates: start: 20180118, end: 20180118
  5. AMIODARONE HYDROCHLORIDE [Suspect]
     Active Substance: AMIODARONE HYDROCHLORIDE
     Dosage: 20 DOSAGE FORM, TOTAL
     Route: 048
     Dates: start: 20180118, end: 20180118
  6. BISOPROLOL FUMARATE [Suspect]
     Active Substance: BISOPROLOL FUMARATE
     Dosage: 28 DOSAGE FORM, TOTAL
     Route: 048
     Dates: start: 20180118, end: 20180118
  7. HYDROCHLOROTHIAZIDE\OLMESARTAN MEDOXOMIL [Suspect]
     Active Substance: HYDROCHLOROTHIAZIDE\OLMESARTAN MEDOXOMIL
     Dosage: 64 DOSAGE FORM, TOTAL
     Route: 048
     Dates: start: 20180118, end: 20180118
  8. HYDROCHLOROTHIAZIDE [Suspect]
     Active Substance: HYDROCHLOROTHIAZIDE
     Dosage: 64 DOSAGE FORM, TOTAL
     Route: 048
     Dates: start: 20180118, end: 20180118
  9. PALEXIA [Suspect]
     Active Substance: TAPENTADOL HYDROCHLORIDE
     Dosage: 80 DOSAGE FORM, TOTAL
     Route: 048
     Dates: start: 20180118, end: 20180118
  10. HYDROCHLOROTHIAZIDE [Suspect]
     Active Substance: HYDROCHLOROTHIAZIDE
     Dosage: 64 DF,TOTAL
     Route: 048
     Dates: start: 20180118, end: 20180118
  11. HYDROCHLOROTHIAZIDE\RAMIPRIL [Suspect]
     Active Substance: HYDROCHLOROTHIAZIDE\RAMIPRIL
     Dosage: 64 DOSAGE FORM, DAILY
     Route: 048
     Dates: start: 20180118, end: 20180118
  12. TAMSULOSIN HYDROCHLORIDE [Concomitant]
     Active Substance: TAMSULOSIN HYDROCHLORIDE
     Indication: Benign prostatic hyperplasia
     Dosage: UNK
     Route: 048
  13. TAMSULOSIN HYDROCHLORIDE [Concomitant]
     Active Substance: TAMSULOSIN HYDROCHLORIDE
     Dosage: UNK
     Route: 048

REACTIONS (4)
  - Intentional overdose [Unknown]
  - Urinary incontinence [Recovering/Resolving]
  - Confusional state [Recovering/Resolving]
  - Drug abuse [Recovering/Resolving]

NARRATIVE: CASE EVENT DATE: 20180118
